FAERS Safety Report 20796107 (Version 3)
Quarter: 2022Q3

REPORT INFORMATION
  Report Type: Spontaneous
  Country: CH (occurrence: CH)
  Receive Date: 20220506
  Receipt Date: 20220705
  Transmission Date: 20221027
  Serious: No
  Sender: FDA-Public Use
  Company Number: CH-BIOGEN-2022BI01118561

PATIENT
  Age: 84 Year
  Sex: Female
  Weight: 51 kg

DRUGS (8)
  1. ADUCANUMAB [Suspect]
     Active Substance: ADUCANUMAB
     Indication: Dementia Alzheimer^s type
     Dosage: INFUSION 1
     Route: 050
     Dates: start: 20211222
  2. ADUCANUMAB [Suspect]
     Active Substance: ADUCANUMAB
     Dosage: INFUSION 2
     Route: 050
     Dates: start: 20220117
  3. ADUCANUMAB [Suspect]
     Active Substance: ADUCANUMAB
     Dosage: INFUSION 3
     Route: 050
     Dates: start: 20220214
  4. ADUCANUMAB [Suspect]
     Active Substance: ADUCANUMAB
     Dosage: INFUSION 4
     Route: 050
     Dates: start: 20220314
  5. ADUCANUMAB [Suspect]
     Active Substance: ADUCANUMAB
     Dosage: INFUSION 5
     Route: 050
     Dates: start: 20220411
  6. ADUCANUMAB [Suspect]
     Active Substance: ADUCANUMAB
     Dosage: INFUSION 6
     Route: 050
     Dates: start: 20220512
  7. Exelon Patch TTS 10 [Concomitant]
     Indication: Product used for unknown indication
     Route: 050
     Dates: start: 20210801
  8. PREGABALIN [Concomitant]
     Active Substance: PREGABALIN
     Indication: Product used for unknown indication
     Route: 050
     Dates: start: 20210901

REACTIONS (1)
  - Amyloid related imaging abnormality-oedema/effusion [Not Recovered/Not Resolved]

NARRATIVE: CASE EVENT DATE: 20220413
